FAERS Safety Report 4679570-4 (Version None)
Quarter: 2005Q2

REPORT INFORMATION
  Report Type: 
  Country: None (occurrence: None)
  Receive Date: 20050531
  Receipt Date: 20050524
  Transmission Date: 20051028
  Serious: Yes (Death)
  Sender: FDA-Public Use
  Company Number: URSO 2005-015

PATIENT
  Age: 52 Year
  Sex: Female

DRUGS (8)
  1. URSODIOL [Suspect]
     Indication: BILIARY CIRRHOSIS PRIMARY
     Dosage: 300MG PO
     Route: 048
     Dates: start: 20011204
  2. THIATON     (TIQUIZIUM BROMIDE) [Concomitant]
  3. OMEPRAZOLE [Concomitant]
  4. RIZE (CLOTIAZEPAM) [Concomitant]
  5. BUSCOPAN              (SCOPOLAMINE BUTYLBROMIDE) [Concomitant]
  6. NAUZELIN (DOMPERIDONE) [Concomitant]
  7. PAXIL         (PAROXETINE HYDROCHLORIDE HYDRATE) [Concomitant]
  8. COLIOPAN        (BUTROPIUM BROMIDE) [Concomitant]

REACTIONS (3)
  - CARDIAC FAILURE ACUTE [None]
  - DRUG LEVEL DECREASED [None]
  - SUDDEN DEATH [None]
